FAERS Safety Report 21715962 (Version 1)
Quarter: 2022Q4

REPORT INFORMATION
  Report Type: Spontaneous
  Country: US (occurrence: None)
  Receive Date: 20221210
  Receipt Date: 20221210
  Transmission Date: 20230113
  Serious: Yes (Other)
  Sender: FDA-Public Use
  Company Number: None

PATIENT
  Age: 59 Year
  Sex: Female

DRUGS (1)
  1. BOTOX [Suspect]
     Active Substance: ONABOTULINUMTOXINA
     Indication: Migraine without aura
     Dosage: OTHER FREQUENCY : EVERY 90 DAYS;?
     Dates: start: 20210728

REACTIONS (3)
  - Treatment delayed [None]
  - Migraine [None]
  - Product dispensing issue [None]

NARRATIVE: CASE EVENT DATE: 20221205
